FAERS Safety Report 9164004 (Version 1)
Quarter: 2012Q4

REPORT INFORMATION
  Report Type: 
  Country: US (occurrence: US)
  Receive Date: 20121127
  Receipt Date: 20121127
  Transmission Date: 20130627
  Serious: Yes (Life-Threatening, Hospitalization, Other)
  Sender: FDA-Public Use
  Company Number: US-RB-047040-12

PATIENT
  Age: 65 Year
  Sex: Female

DRUGS (4)
  1. SUBOXONE FILM [Suspect]
     Indication: PAIN MANAGEMENT
     Dosage: Suboxone film
     Route: 060
     Dates: start: 201211, end: 201211
  2. LITHIUM [Concomitant]
     Indication: PRODUCT USED FOR UNKNOWN INDICATION
     Dosage: Dosing details unknown
     Route: 065
  3. ANTIDEPRESSANTS [Concomitant]
     Indication: PRODUCT USED FOR UNKNOWN INDICATION
     Dosage: Dosing details unknown
     Route: 065
  4. PERCOCET [Concomitant]
     Indication: PRODUCT USED FOR UNKNOWN INDICATION
     Dosage: 10 mg four times a day
     Route: 065

REACTIONS (6)
  - Off label use [Recovered/Resolved]
  - Wrong technique in drug usage process [Unknown]
  - Off label use [Unknown]
  - Loss of consciousness [Unknown]
  - Malaise [Unknown]
  - Hepatic function abnormal [Recovering/Resolving]
